FAERS Safety Report 17745043 (Version 1)
Quarter: 2020Q2

REPORT INFORMATION
  Report Type: Report from Study
  Country: IN (occurrence: IN)
  Receive Date: 20200505
  Receipt Date: 20200505
  Transmission Date: 20200714
  Serious: Yes (Death)
  Sender: FDA-Public Use
  Company Number: NVSC2020IN121191

PATIENT
  Sex: Female

DRUGS (1)
  1. VYMADA [Suspect]
     Active Substance: SACUBITRIL\VALSARTAN
     Indication: CARDIAC FAILURE CONGESTIVE
     Dosage: 0.5 DF, QD (HALF OF 50 MG)
     Route: 065
     Dates: start: 20180405

REACTIONS (3)
  - Renal failure [Fatal]
  - Myocardial infarction [Fatal]
  - Wrong technique in product usage process [Unknown]
